FAERS Safety Report 8831630 (Version 2)
Quarter: 2012Q4

REPORT INFORMATION
  Report Type: 
  Country: GB (occurrence: GB)
  Receive Date: 20121009
  Receipt Date: 20121217
  Transmission Date: 20130627
  Serious: Yes (Hospitalization)
  Sender: FDA-Public Use
  Company Number: GB-VIIV HEALTHCARE LIMITED-B0834363A

PATIENT
  Age: 55 Year
  Sex: Female

DRUGS (7)
  1. ABACAVIR SULFATE + LAMIVUDINE [Suspect]
     Indication: HIV INFECTION
     Dosage: 1IUAX Per day
     Route: 048
     Dates: start: 201103, end: 201205
  2. CETIRIZINE [Suspect]
     Indication: MIGRAINE
  3. CAFFEINE [Suspect]
     Indication: MIGRAINE
     Route: 065
  4. REYATAZ [Suspect]
     Indication: HIV INFECTION
     Dosage: 300MG Per day
     Route: 048
     Dates: start: 201103, end: 201205
  5. RITONAVIR [Suspect]
     Indication: HIV INFECTION
     Dosage: 100MG Per day
     Route: 065
     Dates: start: 201103, end: 201205
  6. AMITRIPTYLINE [Suspect]
     Indication: MIGRAINE
     Route: 065
  7. MEFENAMIC ACID [Suspect]
     Indication: MIGRAINE
     Route: 065

REACTIONS (2)
  - Lactic acidosis [Recovered/Resolved]
  - Mononeuropathy multiplex [Recovering/Resolving]
